FAERS Safety Report 5512197-0 (Version None)
Quarter: 2007Q4

REPORT INFORMATION
  Report Type: 
  Country: None (occurrence: None)
  Receive Date: 20071112
  Receipt Date: 20071106
  Transmission Date: 20080405
  Serious: Yes (Death)
  Sender: FDA-Public Use
  Company Number: PHBS2007CA18613

PATIENT
  Age: 36 Year
  Sex: Male

DRUGS (6)
  1. CLOZAPINE [Suspect]
     Indication: SCHIZOPHRENIA, PARANOID TYPE
     Dosage: GRADUALLY INCREASED TO 600 MG/DAY
  2. CISAPRIDE [Concomitant]
     Dosage: 15 MG/DAY
  3. OMEPRAZOLE [Concomitant]
     Dosage: 20 MG/DAY
  4. DOCUSATE SODIUM [Concomitant]
  5. PSYLLIUM HYDROPHILIC MUCILLOID [Concomitant]
     Dosage: 15 MG/DAY
  6. BENZTROPINE MESYLATE [Suspect]
     Dosage: 2 MG/DAY

REACTIONS (16)
  - ABDOMINAL DISCOMFORT [None]
  - ABDOMINAL DISTENSION [None]
  - ABDOMINAL WALL OPERATION [None]
  - APPENDICECTOMY [None]
  - CIRCULATORY COLLAPSE [None]
  - CONSTIPATION [None]
  - HYPOTENSION [None]
  - INTUBATION [None]
  - LAPAROTOMY [None]
  - MALAISE [None]
  - METABOLIC ACIDOSIS [None]
  - NAUSEA [None]
  - NECROTISING COLITIS [None]
  - SALIVARY HYPERSECRETION [None]
  - SOMNOLENCE [None]
  - WHITE BLOOD CELL COUNT INCREASED [None]
